FAERS Safety Report 9339243 (Version 2)
Quarter: 2013Q3

REPORT INFORMATION
  Report Type: Spontaneous
  Country: JP (occurrence: JP)
  Receive Date: 20130610
  Receipt Date: 20130821
  Transmission Date: 20140515
  Serious: Yes (Other)
  Sender: FDA-Public Use
  Company Number: JP-009507513-1305JPN017655

PATIENT
  Age: 75 Year
  Sex: Male
  Weight: 50 kg

DRUGS (14)
  1. MENESIT TABLETS - 100 [Suspect]
     Indication: DEPRESSION
     Dosage: 100 MG, TID
     Route: 048
     Dates: start: 20130419, end: 20130506
  2. MENESIT TABLETS - 100 [Suspect]
     Dosage: 100 MG, QD
     Route: 048
     Dates: start: 20130507
  3. YUCION-S [Suspect]
     Indication: C-REACTIVE PROTEIN INCREASED
     Dosage: 3 G, BID
     Route: 042
     Dates: start: 20130502, end: 20130507
  4. RIVASTACH [Suspect]
     Indication: DEPRESSION
     Dosage: 1 DF, QD
     Route: 062
     Dates: start: 20130418
  5. MEVALOTIN [Concomitant]
     Dosage: DOSAGE IS UNCERTAIN DURING A DAY
     Route: 048
  6. TOLEDOMIN [Concomitant]
     Dosage: DOSAGE IS UNCERTAIN DURING A DAY
     Route: 048
  7. NEXIUM [Concomitant]
     Dosage: DOSAGE IS UNCERTAIN DURING A DAY
     Route: 048
  8. BIOFERMIN (BIFIDOBACTERIUM BIFIDUM) [Concomitant]
     Dosage: DOSAGE IS UNCERTAIN DURING A DAY
     Route: 048
  9. ALINAMIN F (FURSULTIAMINE HYDROCHLORIDE) [Concomitant]
     Dosage: DOSAGE IS UNCERTAIN DURING A DAY
     Route: 048
  10. MAINTATE [Concomitant]
     Dosage: DOSAGE IS UNCERTAIN DURING A DAY
     Route: 048
  11. PLAVIX [Concomitant]
     Dosage: DOSAGE IS UNCERTAIN DURING A DAY
     Route: 048
  12. PURSENNID (SENNA) [Concomitant]
     Dosage: DOSAGE IS UNCERTAIN DURING A DAY
     Route: 048
  13. MAGLAX [Concomitant]
     Dosage: DOSAGE IS UNCERTAIN DURING A DAY
     Route: 048
  14. ENSURE [Concomitant]
     Dosage: DOSAGE I SUNCERTAIN DURING A DAY
     Route: 048

REACTIONS (1)
  - Liver disorder [Recovering/Resolving]
